FAERS Safety Report 6666906-8 (Version None)
Quarter: 2010Q2

REPORT INFORMATION
  Report Type: 
  Country: None (occurrence: None)
  Receive Date: 20100405
  Receipt Date: 20100322
  Transmission Date: 20101027
  Serious: Yes (Other)
  Sender: FDA-Public Use
  Company Number: PHHY2010GB19622

PATIENT
  Age: 67 Year
  Sex: Female
  Weight: 47 kg

DRUGS (5)
  1. ZOLEDRONIC ACID [Suspect]
     Indication: OSTEOPOROSIS
     Dosage: 5 MG
     Route: 042
     Dates: start: 20091127
  2. CALCITONIN [Concomitant]
  3. THYROXINE [Concomitant]
  4. MOVICOL [Concomitant]
     Dosage: 1 DF
     Route: 048
  5. DOMPERIDONE [Concomitant]
     Dosage: 10 MG
     Route: 048

REACTIONS (5)
  - HEADACHE [None]
  - PAIN [None]
  - PRURITUS [None]
  - PURPURA [None]
  - RASH [None]
